FAERS Safety Report 9188125 (Version 2)
Quarter: 2013Q3

REPORT INFORMATION
  Report Type: Spontaneous
  Country: US (occurrence: US)
  Receive Date: 20130325
  Receipt Date: 20130917
  Transmission Date: 20140515
  Serious: Yes (Other)
  Sender: FDA-Public Use
  Company Number: US-PFIZER INC-2013093117

PATIENT
  Age: 38 Year
  Sex: Female

DRUGS (5)
  1. CHANTIX [Suspect]
     Dosage: STARTER PACK, UNK
     Dates: start: 20080118
  2. CHANTIX [Suspect]
     Dosage: 1 MG (MAINTENANCE PACK), UNK
     Dates: start: 20080307, end: 20080401
  3. CHERATUSSIN AC [Concomitant]
     Dosage: UNK
     Dates: start: 20080317
  4. CLONAZEPAM [Concomitant]
     Dosage: 1 MG, UNK
     Dates: start: 20080317
  5. PROPOXYPHENE NAPSYLATE W/ACETAMINOPHENE [Concomitant]
     Dosage: 100/650 MG UNK
     Dates: start: 20080328

REACTIONS (1)
  - Suicide attempt [Unknown]
